FAERS Safety Report 8646018 (Version 7)
Quarter: 2017Q1

REPORT INFORMATION
  Report Type: Spontaneous
  Country: US (occurrence: US)
  Receive Date: 20120702
  Receipt Date: 20170328
  Transmission Date: 20170429
  Serious: Yes (Disabling, Other)
  Sender: FDA-Public Use
  Company Number: US-009507513-1206USA04943

PATIENT
  Sex: Female
  Weight: 101.59 kg

DRUGS (7)
  1. GLYBURIDE. [Concomitant]
     Active Substance: GLYBURIDE
     Indication: TYPE 2 DIABETES MELLITUS
     Dosage: 2.5-5 MG UNK
     Route: 048
     Dates: start: 2005
  2. METFORMIN [Concomitant]
     Active Substance: METFORMIN HYDROCHLORIDE
     Indication: TYPE 2 DIABETES MELLITUS
     Dosage: 500 MG, UNK
     Route: 048
     Dates: start: 1994
  3. LIPITOR [Concomitant]
     Active Substance: ATORVASTATIN CALCIUM
     Indication: BLOOD CHOLESTEROL INCREASED
     Dosage: 20 MG, UNK
     Route: 048
     Dates: start: 2000
  4. FOSAMAX PLUS D [Suspect]
     Active Substance: ALENDRONATE SODIUM\CHOLECALCIFEROL
     Indication: OSTEOPOROSIS
     Dosage: 70MG/2800IU, QW
     Route: 048
     Dates: start: 200803
  5. FOSAMAX [Suspect]
     Active Substance: ALENDRONATE SODIUM
     Indication: OSTEOPENIA
  6. ATENOLOL. [Concomitant]
     Active Substance: ATENOLOL
     Indication: HEART RATE INCREASED
     Dosage: 25 MG, UNK
     Route: 048
     Dates: start: 200104
  7. FOSAMAX [Suspect]
     Active Substance: ALENDRONATE SODIUM
     Indication: OSTEOPOROSIS
     Dosage: 70 MG, UNK
     Route: 048
     Dates: start: 20051001, end: 200804

REACTIONS (25)
  - Osteonecrosis [Unknown]
  - Pain in extremity [Recovering/Resolving]
  - Femur fracture [Unknown]
  - Stress fracture [Unknown]
  - Intraocular lens implant [Unknown]
  - Nephrolithiasis [Unknown]
  - Anaemia [Unknown]
  - Diabetic neuropathy [Unknown]
  - Femur fracture [Not Recovered/Not Resolved]
  - Hip fracture [Unknown]
  - Low turnover osteopathy [Unknown]
  - Localised infection [Unknown]
  - Limb deformity [Unknown]
  - Neuropathic arthropathy [Unknown]
  - Skin cancer [Unknown]
  - Osteoporosis [Unknown]
  - Diabetic retinopathy [Unknown]
  - Intramedullary rod insertion [Unknown]
  - Melanocytic naevus [Unknown]
  - Tooth extraction [Unknown]
  - Hip arthroplasty [Unknown]
  - Hip fracture [Not Recovered/Not Resolved]
  - Femoral neck fracture [Unknown]
  - Osteomyelitis chronic [Unknown]
  - Medical device removal [Unknown]

NARRATIVE: CASE EVENT DATE: 2005
